FAERS Safety Report 8487657-3 (Version None)
Quarter: 2012Q3

REPORT INFORMATION
  Report Type: 
  Country: None (occurrence: None)
  Receive Date: 20120705
  Receipt Date: 20120625
  Transmission Date: 20120928
  Serious: Yes (Other)
  Sender: FDA-Public Use
  Company Number: US-BAYER-2012-041790

PATIENT
  Age: 17 Year
  Sex: Female

DRUGS (6)
  1. FLEXERIL [Concomitant]
  2. IBUPROFEN [Concomitant]
  3. OMEPRAZOLE [Concomitant]
  4. DROSPIRENONE AND ETHINYL ESTRADIOL [Suspect]
  5. SKELAXIN [Concomitant]
  6. NORCO [Concomitant]

REACTIONS (2)
  - DEEP VEIN THROMBOSIS [None]
  - PULMONARY EMBOLISM [None]
